FAERS Safety Report 8456492-4 (Version None)
Quarter: 2012Q2

REPORT INFORMATION
  Report Type: 
  Country: None (occurrence: None)
  Receive Date: 20120621
  Receipt Date: 20120615
  Transmission Date: 20120825
  Serious: No
  Sender: FDA-Public Use
  Company Number: US-ASTRAZENECA-2011SE37590

PATIENT
  Age: 44 Year
  Sex: Female
  Weight: 113.9 kg

DRUGS (8)
  1. LAMOTRIGINE [Concomitant]
     Indication: ANXIOLYTIC THERAPY
  2. PROZAC [Concomitant]
     Indication: ANXIOLYTIC THERAPY
  3. SEROQUEL [Suspect]
     Indication: ANXIOLYTIC THERAPY
     Route: 048
  4. XANAX [Concomitant]
     Indication: ANXIOLYTIC THERAPY
  5. NEURONTIN [Concomitant]
     Indication: NEUROPATHY PERIPHERAL
  6. SEROQUEL [Suspect]
     Indication: SLEEP DISORDER
     Route: 048
  7. METFORMIN HCL [Concomitant]
     Indication: DIABETES MELLITUS
  8. VYTORIN [Concomitant]
     Indication: BLOOD CHOLESTEROL

REACTIONS (6)
  - DRUG DOSE OMISSION [None]
  - DISTURBANCE IN ATTENTION [None]
  - WEIGHT DECREASED [None]
  - INSOMNIA [None]
  - ANGER [None]
  - OFF LABEL USE [None]
